FAERS Safety Report 4300983-4 (Version None)
Quarter: 2004Q1

REPORT INFORMATION
  Report Type: 
  Country: None (occurrence: None)
  Receive Date: 20040219
  Receipt Date: 20040209
  Transmission Date: 20041129
  Serious: Yes (Life-Threatening, Other)
  Sender: FDA-Public Use
  Company Number: 2003177560GB

PATIENT
  Age: 17 Year
  Sex: Female

DRUGS (3)
  1. HEMABATE [Suspect]
     Indication: POSTPARTUM HAEMORRHAGE
     Dosage: 250, 1ST DOSE, INTRAMUSCULAR; 250, 2ND DOSE, INTRAMUSCULAR
     Route: 030
     Dates: start: 20030831, end: 20030831
  2. HEMABATE [Suspect]
     Indication: POSTPARTUM HAEMORRHAGE
     Dosage: 250, 1ST DOSE, INTRAMUSCULAR; 250, 2ND DOSE, INTRAMUSCULAR
     Route: 030
     Dates: start: 20030831, end: 20030831
  3. HEMABATE [Suspect]
     Dosage: 500 3RD DOSE, INTRA-UTERINE
     Route: 015
     Dates: start: 20030831, end: 20030831

REACTIONS (6)
  - BRONCHOSPASM [None]
  - CIRCULATORY COLLAPSE [None]
  - PO2 DECREASED [None]
  - PULMONARY HYPERTENSION [None]
  - PULSE ABSENT [None]
  - UTERINE HYPOTONUS [None]
